FAERS Safety Report 19694966 (Version 11)
Quarter: 2022Q1

REPORT INFORMATION
  Report Type: Report from Study
  Country: US (occurrence: US)
  Receive Date: 20210812
  Receipt Date: 20220114
  Transmission Date: 20220423
  Serious: Yes (Hospitalization)
  Sender: FDA-Public Use
  Company Number: US-NOVARTISPH-NVSC2021US177383

PATIENT
  Sex: Male

DRUGS (2)
  1. ENTRESTO [Suspect]
     Active Substance: SACUBITRIL\VALSARTAN
     Indication: Product used for unknown indication
     Dosage: 50 MG (24.26 MG), QD
     Route: 048
     Dates: start: 202107
  2. MORPHINE [Suspect]
     Active Substance: MORPHINE
     Indication: Product used for unknown indication
     Dosage: UNK
     Route: 065

REACTIONS (8)
  - Cardiac disorder [Unknown]
  - Vein rupture [Recovering/Resolving]
  - Vein disorder [Recovering/Resolving]
  - Catheter site haemorrhage [Recovering/Resolving]
  - Memory impairment [Unknown]
  - Somnolence [Unknown]
  - Hypotension [Unknown]
  - Inappropriate schedule of product administration [Unknown]
